FAERS Safety Report 9310305 (Version 1)
Quarter: 2013Q2

REPORT INFORMATION
  Report Type: Spontaneous
  Country: US (occurrence: US)
  Receive Date: 20130527
  Receipt Date: 20130527
  Transmission Date: 20140414
  Serious: Yes (Other)
  Sender: FDA-Public Use
  Company Number: US-PFIZER INC-2013160675

PATIENT
  Age: 61 Year
  Sex: Male
  Weight: 104 kg

DRUGS (6)
  1. NEURONTIN [Suspect]
     Indication: NEUROPATHY PERIPHERAL
     Dosage: UNK, 3X/DAY
     Dates: start: 2012
  2. NEURONTIN [Suspect]
     Dosage: 300 MG, 1X/DAY AT NIGHT
     Dates: start: 2012
  3. NEURONTIN [Suspect]
     Dosage: UNK
  4. ENALAPRIL [Concomitant]
     Indication: BLOOD PRESSURE ABNORMAL
     Dosage: 40 MG DAILY
  5. IBUPROFEN [Concomitant]
     Indication: PAIN
     Dosage: 500 MG DAILY
  6. LYRICA [Concomitant]
     Indication: NEUROPATHY PERIPHERAL
     Dosage: 75 MG DAILY
     Dates: start: 201305

REACTIONS (3)
  - Back disorder [Unknown]
  - Dizziness [Unknown]
  - Somnolence [Unknown]
